FAERS Safety Report 6148978-2 (Version None)
Quarter: 2009Q2

REPORT INFORMATION
  Report Type: 
  Country: None (occurrence: None)
  Receive Date: 20090406
  Receipt Date: 20090324
  Transmission Date: 20091009
  Serious: Yes (Death)
  Sender: FDA-Public Use
  Company Number: 2009-01169

PATIENT
  Age: 74 Year
  Sex: Male
  Weight: 65 kg

DRUGS (10)
  1. VELCADE [Suspect]
     Indication: MULTIPLE MYELOMA
     Dosage: 2.3 MG,   INTRAVENOUS
     Route: 042
     Dates: start: 20070828, end: 20070928
  2. CEFTAZIDIME [Concomitant]
  3. AMOBAN (ZOPICLONE) [Concomitant]
  4. ALOSENN (TARAXACUM OFFICINALE, ACHILLEA, SENNA LEAF, RUBIA ROOT TINCTU [Concomitant]
  5. ACETAMINOPHEN [Concomitant]
  6. MAG-LAX (MAGNESIUM HYDROXIDE, PARAFFIN, LIQUID) [Concomitant]
  7. ADSORBIN (ALUMINIUM SILICATE) [Concomitant]
  8. ALBUMIN TANNATE (ALBUMIN TANNATE) [Concomitant]
  9. PLATELETS [Concomitant]
  10. LOPERAMIDE HCL [Concomitant]

REACTIONS (5)
  - BLOOD ALKALINE PHOSPHATASE INCREASED [None]
  - DIARRHOEA [None]
  - DISEASE PROGRESSION [None]
  - PLATELET COUNT DECREASED [None]
  - PYREXIA [None]
